FAERS Safety Report 6045770-4 (Version None)
Quarter: 2009Q1

REPORT INFORMATION
  Report Type: 
  Country: None (occurrence: None)
  Receive Date: 20090121
  Receipt Date: 20090109
  Transmission Date: 20090719
  Serious: Yes (Other)
  Sender: FDA-Public Use
  Company Number: BR-PFIZER INC-2008090791

PATIENT

DRUGS (1)
  1. CHAMPIX [Suspect]
     Route: 048

REACTIONS (6)
  - DYSPNOEA [None]
  - FEELING ABNORMAL [None]
  - INSOMNIA [None]
  - MOTOR DYSFUNCTION [None]
  - NAUSEA [None]
  - RECTAL FISSURE [None]
